FAERS Safety Report 18312707 (Version 1)
Quarter: 2020Q3

REPORT INFORMATION
  Report Type: Spontaneous
  Country: US (occurrence: US)
  Receive Date: 20200925
  Receipt Date: 20200925
  Transmission Date: 20201103
  Serious: Yes (Other)
  Sender: FDA-Public Use
  Company Number: None

PATIENT
  Age: 77 Year
  Sex: Male
  Weight: 94.2 kg

DRUGS (11)
  1. DILTIAZEM 10 MG IV ONCE [Concomitant]
     Dates: start: 20200920, end: 20200920
  2. FAMOTIDINE 20 MG IV Q12H [Concomitant]
     Dates: start: 20200920, end: 20200925
  3. REMDESIVIR. [Suspect]
     Active Substance: REMDESIVIR
     Indication: COVID-19 PNEUMONIA
     Dosage: ?          OTHER FREQUENCY:ONCE;?
     Route: 041
     Dates: start: 20200920, end: 20200920
  4. ENOXAPARIN 80 MG SC Q12H [Concomitant]
     Dates: start: 20200920, end: 20200925
  5. CISATRACURIUM 100 MG IV INFUSION [Concomitant]
     Dates: start: 20200920, end: 20200925
  6. FENTANYL 25 MCG/ML? 100 ML IV INFUSION [Concomitant]
     Dates: start: 20200920, end: 20200925
  7. NOREPINEPHRINE 8 MG IV INFUSION [Concomitant]
     Dates: start: 20200920, end: 20200921
  8. ACETAMINOPHEN 650 MG NG ONCE [Concomitant]
     Dates: start: 20200920, end: 20200920
  9. CEFEPIME 1G IV Q8H [Concomitant]
     Dates: start: 20200920, end: 20200921
  10. PROPOFOL 1000 MG/100 ML IV INFUSION [Concomitant]
     Dates: start: 20200920, end: 20200925
  11. DEXAMETHASONE 6 MG IV Q24H [Concomitant]
     Dates: start: 20200919, end: 20200925

REACTIONS (3)
  - Poor quality product administered [None]
  - Product storage error [None]
  - Blood creatinine increased [None]

NARRATIVE: CASE EVENT DATE: 20200921
